FAERS Safety Report 5050828-2 (Version None)
Quarter: 2006Q3

REPORT INFORMATION
  Report Type: 
  Country: None (occurrence: None)
  Receive Date: 20060710
  Receipt Date: 20060626
  Transmission Date: 20061208
  Serious: Yes (Other)
  Sender: FDA-Public Use
  Company Number: GXKR2006GB03694

PATIENT
  Age: 29 Year
  Sex: Male

DRUGS (2)
  1. OMEPRAZOLE [Suspect]
     Indication: ABDOMINAL PAIN UPPER
     Dosage: 40 MG, ORAL
     Route: 048
     Dates: start: 20060508, end: 20060601
  2. ERYTHROMYCIN [Concomitant]

REACTIONS (1)
  - ERECTILE DYSFUNCTION [None]
